FAERS Safety Report 17096849 (Version 1)
Quarter: 2019Q4

REPORT INFORMATION
  Report Type: Spontaneous
  Country: US (occurrence: US)
  Receive Date: 20191102
  Receipt Date: 20191102
  Transmission Date: 20200122
  Serious: Yes (Hospitalization)
  Sender: FDA-Public Use
  Company Number: None

PATIENT
  Age: 48 Year
  Sex: Male
  Weight: 56.4 kg

DRUGS (4)
  1. 5-FLUOROURACIL (5-FU) [Suspect]
     Active Substance: FLUOROURACIL
     Dates: end: 20181211
  2. LEUCOVORIN CALCIUM. [Suspect]
     Active Substance: LEUCOVORIN CALCIUM
     Dates: end: 20181211
  3. ELOXATIN [Suspect]
     Active Substance: OXALIPLATIN
     Dates: end: 20181211
  4. XELODA [Suspect]
     Active Substance: CAPECITABINE
     Dates: end: 20180507

REACTIONS (3)
  - Pneumothorax [None]
  - Emphysema [None]
  - Hypersensitivity [None]

NARRATIVE: CASE EVENT DATE: 20181211
